FAERS Safety Report 17978385 (Version 1)
Quarter: 2020Q3

REPORT INFORMATION
  Report Type: Spontaneous
  Country: FR (occurrence: FR)
  Receive Date: 20200703
  Receipt Date: 20200703
  Transmission Date: 20201103
  Serious: Yes (Hospitalization)
  Sender: FDA-Public Use
  Company Number: FR-TEVA-2020-FR-1794073

PATIENT
  Age: 78 Year
  Sex: Male
  Weight: 78 kg

DRUGS (5)
  1. PREDNISOLONE. [Suspect]
     Active Substance: PREDNISOLONE
     Indication: PREMEDICATION
     Dosage: 3 DAYS / CURE
     Route: 048
     Dates: start: 20200107, end: 20200121
  2. SETOFILM [Suspect]
     Active Substance: ONDANSETRON
     Indication: PREMEDICATION
     Dosage: 8 MG
     Route: 048
     Dates: start: 20200107, end: 20200121
  3. EMEND [Suspect]
     Active Substance: APREPITANT
     Indication: PREMEDICATION
     Dosage: 3 DAYS / CURE
     Route: 048
     Dates: start: 20200107, end: 20200121
  4. TOMUDEX [Suspect]
     Active Substance: RALTITREXED
     Indication: COLORECTAL ADENOCARCINOMA
     Dosage: 3.85 MG
     Route: 042
     Dates: start: 20200107, end: 20200121
  5. OXALIPLATINE ACCORD [Suspect]
     Active Substance: OXALIPLATIN
     Indication: COLORECTAL ADENOCARCINOMA
     Dosage: 164 MG
     Route: 042
     Dates: start: 20200107, end: 20200121

REACTIONS (1)
  - Tonic clonic movements [Recovered/Resolved]

NARRATIVE: CASE EVENT DATE: 20200121
